FAERS Safety Report 25208869 (Version 2)
Quarter: 2025Q2

REPORT INFORMATION
  Report Type: Spontaneous
  Country: US (occurrence: US)
  Receive Date: 20250417
  Receipt Date: 20250508
  Transmission Date: 20250717
  Serious: Yes (Hospitalization, Other)
  Sender: BRISTOL-MYERS SQUIBB COMPANY
  Company Number: US-BRISTOL-MYERS SQUIBB COMPANY-2025-051199

PATIENT
  Age: 77 Year
  Sex: Female

DRUGS (1)
  1. POMALYST [Suspect]
     Active Substance: POMALIDOMIDE
     Indication: Plasma cell myeloma
     Dosage: FREQ: QD
     Route: 048
     Dates: start: 20231228, end: 20250328

REACTIONS (11)
  - Nausea [Unknown]
  - Vomiting [Unknown]
  - Hypokalaemia [Unknown]
  - Hypomagnesaemia [Unknown]
  - Troponin increased [Unknown]
  - Atrial fibrillation [Unknown]
  - Encephalopathy [Unknown]
  - Dyspnoea [Unknown]
  - Dizziness [Unknown]
  - Decreased appetite [Unknown]
  - Cerebral infarction [Unknown]

NARRATIVE: CASE EVENT DATE: 20250301
